FAERS Safety Report 6517139-7 (Version None)
Quarter: 2009Q4

REPORT INFORMATION
  Report Type: 
  Country: None (occurrence: None)
  Receive Date: 20091223
  Receipt Date: 20091215
  Transmission Date: 20100525
  Serious: Yes (Death)
  Sender: FDA-Public Use
  Company Number: GB-ELI_LILLY_AND_COMPANY-GB200911003357

PATIENT
  Sex: Male

DRUGS (3)
  1. CYMBALTA [Suspect]
     Dosage: 60 MG, UNKNOWN
     Route: 048
  2. CLOZARIL [Concomitant]
     Indication: SCHIZOPHRENIA
     Dosage: 800 MG, UNKNOWN
     Route: 048
  3. NALTREXONE HYDROCHLORIDE [Concomitant]
     Indication: DRUG DEPENDENCE
     Dosage: 50 MG, UNKNOWN
     Route: 048

REACTIONS (1)
  - SUDDEN DEATH [None]
